FAERS Safety Report 21204181 (Version 2)
Quarter: 2022Q4

REPORT INFORMATION
  Report Type: Report from Study
  Country: CO (occurrence: CO)
  Receive Date: 20220812
  Receipt Date: 20221004
  Transmission Date: 20230112
  Serious: Yes (Other)
  Sender: FDA-Public Use
  Company Number: CO-ABBVIE-22K-036-4500746-00

PATIENT
  Sex: Male

DRUGS (1)
  1. ZEMPLAR [Suspect]
     Active Substance: PARICALCITOL
     Indication: Hyperparathyroidism secondary
     Dosage: 2 MICROGRAM
     Route: 048
     Dates: start: 20201023, end: 20211105

REACTIONS (8)
  - Surgery [Recovering/Resolving]
  - Hand fracture [Recovering/Resolving]
  - Peripheral swelling [Recovering/Resolving]
  - Unevaluable event [Recovering/Resolving]
  - Blood parathyroid hormone abnormal [Not Recovered/Not Resolved]
  - Arthralgia [Not Recovered/Not Resolved]
  - Pain in extremity [Not Recovered/Not Resolved]
  - Inflammation [Recovering/Resolving]

NARRATIVE: CASE EVENT DATE: 20220101
